FAERS Safety Report 13965668 (Version 2)
Quarter: 2017Q4

REPORT INFORMATION
  Report Type: Spontaneous
  Country: US (occurrence: US)
  Receive Date: 20170913
  Receipt Date: 20171019
  Transmission Date: 20180320
  Serious: Yes (Death, Other)
  Sender: FDA-Public Use
  Company Number: US-TEVA-804650USA

PATIENT
  Age: 31 Year
  Sex: Female

DRUGS (1)
  1. BUPROPION HYDROCHLORIDE XL [Suspect]
     Active Substance: BUPROPION HYDROCHLORIDE
     Dosage: 13G
     Route: 048

REACTIONS (7)
  - Ventricular tachycardia [Unknown]
  - Circulatory collapse [Fatal]
  - Aphasia [Unknown]
  - Status epilepticus [Unknown]
  - Overdose [Fatal]
  - Generalised tonic-clonic seizure [Unknown]
  - Electrocardiogram QRS complex prolonged [Unknown]
